FAERS Safety Report 24010844 (Version 1)
Quarter: 2024Q2

REPORT INFORMATION
  Report Type: Spontaneous
  Country: US (occurrence: None)
  Receive Date: 20240624
  Receipt Date: 20240624
  Transmission Date: 20240716
  Serious: Yes (Other)
  Sender: FDA-Public Use
  Company Number: None

PATIENT
  Age: 83 Year
  Sex: Female
  Weight: 69.3 kg

DRUGS (14)
  1. PRALUENT [Suspect]
     Active Substance: ALIROCUMAB
     Indication: Blood cholesterol increased
     Dosage: OTHER QUANTITY : 1 INJECTION(S)?OTHER FREQUENCY : EVERY OTHER WEEK?OTHER ROUTE : INJECTED INTO UPPER
     Route: 050
     Dates: start: 20240414, end: 20240616
  2. NEBIVOLOL [Concomitant]
     Active Substance: NEBIVOLOL
  3. HYDROCHLOROTHIAZIDE [Concomitant]
     Active Substance: HYDROCHLOROTHIAZIDE
  4. LOSARTAN POTASSIUM [Concomitant]
     Active Substance: LOSARTAN POTASSIUM
  5. LEVOTHYROXINE SODIUM [Concomitant]
     Active Substance: LEVOTHYROXINE SODIUM
  6. METFORMIN [Concomitant]
     Active Substance: METFORMIN HYDROCHLORIDE
  7. azelastone hydrochloride nasal spray [Concomitant]
  8. FEXOFENADINE [Concomitant]
     Active Substance: FEXOFENADINE HYDROCHLORIDE
  9. NASACORT [Concomitant]
     Active Substance: TRIAMCINOLONE ACETONIDE
  10. VITAMIN C [Concomitant]
     Active Substance: ASCORBIC ACID
  11. VITAMIN K [Concomitant]
     Active Substance: PHYTONADIONE
  12. VITAMIN D [Concomitant]
     Active Substance: VITAMIN D NOS
  13. FISH OIL [Concomitant]
     Active Substance: FISH OIL
  14. probiotic [Concomitant]

REACTIONS (9)
  - Pyrexia [None]
  - Hyperhidrosis [None]
  - Diarrhoea [None]
  - Myalgia [None]
  - Bone pain [None]
  - Fluid retention [None]
  - Wrong technique in product usage process [None]
  - Incorrect dose administered by device [None]
  - Therapy cessation [None]

NARRATIVE: CASE EVENT DATE: 20240618
